FAERS Safety Report 22198447 (Version 2)
Quarter: 2023Q2

REPORT INFORMATION
  Report Type: Spontaneous
  Country: GR (occurrence: GR)
  Receive Date: 20230411
  Receipt Date: 20230502
  Transmission Date: 20230721
  Serious: Yes (Other)
  Sender: FDA-Public Use
  Company Number: GR-APIL-2311008US

PATIENT
  Sex: Male

DRUGS (2)
  1. CARIPRAZINE HYDROCHLORIDE [Suspect]
     Active Substance: CARIPRAZINE HYDROCHLORIDE
     Indication: Psychotic disorder
     Dosage: 3 MG, QD
     Route: 048
     Dates: start: 20230331, end: 20230415
  2. CARIPRAZINE HYDROCHLORIDE [Suspect]
     Active Substance: CARIPRAZINE HYDROCHLORIDE
     Dosage: 4.5 MG, QD
     Route: 048
     Dates: start: 20230327, end: 20230329

REACTIONS (4)
  - Urinary retention [Recovered/Resolved]
  - Off label use [Unknown]
  - Adverse drug reaction [Unknown]
  - Intentional dose omission [Unknown]

NARRATIVE: CASE EVENT DATE: 20230301
